FAERS Safety Report 20617072 (Version 1)
Quarter: 2022Q1

REPORT INFORMATION
  Report Type: Spontaneous
  Country: US (occurrence: None)
  Receive Date: 20220318
  Receipt Date: 20220318
  Transmission Date: 20220423
  Serious: No
  Sender: FDA-Public Use
  Company Number: None

PATIENT
  Age: 65 Year
  Sex: Female
  Weight: 67.5 kg

DRUGS (4)
  1. HYDROCODONE BITARTRATE AND ACETAMINOPHEN [Suspect]
     Active Substance: ACETAMINOPHEN\HYDROCODONE BITARTRATE
     Indication: Intervertebral disc protrusion
     Dosage: FREQUENCY : 3 TIMES A DAY;?QUANTITY: 75 TABLETS
     Route: 048
     Dates: start: 20150311
  2. HYDROCODONE BITARTRATE AND ACETAMINOPHEN [Suspect]
     Active Substance: ACETAMINOPHEN\HYDROCODONE BITARTRATE
     Indication: Tibia fracture
  3. Metroprl/HCTZ [Concomitant]
  4. BC (ASPIRIN\CAFFEINE) [Concomitant]
     Active Substance: ASPIRIN\CAFFEINE

REACTIONS (6)
  - Nausea [None]
  - Vomiting [None]
  - Headache [None]
  - Dyspepsia [None]
  - Diarrhoea [None]
  - Drug ineffective [None]

NARRATIVE: CASE EVENT DATE: 20220311
